FAERS Safety Report 8191726-5 (Version None)
Quarter: 2012Q1

REPORT INFORMATION
  Report Type: 
  Country: None (occurrence: None)
  Receive Date: 20120307
  Receipt Date: 20120305
  Transmission Date: 20120608
  Serious: Yes (Other)
  Sender: FDA-Public Use
  Company Number: US-PFIZER INC-2012059011

PATIENT
  Sex: Female
  Weight: 78.458 kg

DRUGS (7)
  1. VERAPAMIL [Concomitant]
     Indication: HEART RATE ABNORMAL
     Dosage: 240 MG, 2X/DAY
     Route: 048
  2. LIPITOR [Suspect]
     Indication: BLOOD CHOLESTEROL INCREASED
     Dosage: 40 MG HALF A TABLET DAILY
     Route: 048
     Dates: start: 20111212, end: 20120213
  3. ASPIRIN [Concomitant]
     Indication: CARDIOVASCULAR EVENT PROPHYLAXIS
     Dosage: 81 MG, DAILY
     Dates: start: 20080101
  4. LIPITOR [Suspect]
     Dosage: 10 MG DAILY
     Route: 048
     Dates: start: 20120214, end: 20120221
  5. LISINOPRIL [Concomitant]
     Indication: HYPERTENSION
     Dosage: 40 MG HALF TABLET DAILY
     Route: 048
  6. VERAPAMIL [Concomitant]
     Indication: HYPERTENSION
  7. NAPROXEN [Suspect]
     Indication: MYALGIA
     Dosage: 500 MG, 2X/DAY
     Dates: start: 20120221

REACTIONS (5)
  - MUSCULOSKELETAL STIFFNESS [None]
  - DRUG INEFFECTIVE [None]
  - MYALGIA [None]
  - PAIN [None]
  - DISCOMFORT [None]
